FAERS Safety Report 12860850 (Version 1)
Quarter: 2016Q4

REPORT INFORMATION
  Report Type: Report from Study
  Country: FI (occurrence: FR)
  Receive Date: 20161019
  Receipt Date: 20161019
  Transmission Date: 20170207
  Serious: Yes (Death, Other)
  Sender: FDA-Public Use
  Company Number: FR-CELGENEUS-FRA-2016101054

PATIENT

DRUGS (1)
  1. ABRAXANE [Suspect]
     Active Substance: PACLITAXEL
     Indication: PANCREATIC CARCINOMA METASTATIC
     Dosage: 125 MILLIGRAM/SQ. METER
     Route: 041

REACTIONS (19)
  - Thrombocytopenia [Unknown]
  - Febrile neutropenia [Unknown]
  - Diarrhoea [Unknown]
  - Anaemia [Unknown]
  - Nausea [Unknown]
  - Alanine aminotransferase increased [Unknown]
  - Death [Fatal]
  - Vomiting [Unknown]
  - Paraesthesia [Unknown]
  - Alopecia [Unknown]
  - Neutropenia [Unknown]
  - Infection [Unknown]
  - Mucosal inflammation [Unknown]
  - Fatigue [Unknown]
  - Aspartate aminotransferase increased [Unknown]
  - Palmar-plantar erythrodysaesthesia syndrome [Unknown]
  - Embolism [Unknown]
  - Blood bilirubin increased [Unknown]
  - Pancreatic carcinoma metastatic [Unknown]
